FAERS Safety Report 20230803 (Version 2)
Quarter: 2022Q1

REPORT INFORMATION
  Report Type: Spontaneous
  Country: JO (occurrence: JO)
  Receive Date: 20211227
  Receipt Date: 20220201
  Transmission Date: 20220423
  Serious: Yes (Death, Hospitalization, Other)
  Sender: FDA-Public Use
  Company Number: JO-BIOVITRUM-2021JO12557

PATIENT
  Age: 5 Year
  Sex: Female

DRUGS (1)
  1. NITISINONE [Suspect]
     Active Substance: NITISINONE
     Indication: Tyrosinaemia
     Route: 065

REACTIONS (1)
  - Hepatic failure [Fatal]
